FAERS Safety Report 8363947-X (Version None)
Quarter: 2012Q2

REPORT INFORMATION
  Report Type: 
  Country: None (occurrence: None)
  Receive Date: 20120515
  Receipt Date: 20120515
  Transmission Date: 20120825
  Serious: No
  Sender: FDA-Public Use
  Company Number: None

PATIENT
  Sex: Male
  Weight: 104.3273 kg

DRUGS (1)
  1. LOSARTAN POTASSIUM AND HYDROCHLOROTHIAZIDE [Suspect]
     Indication: HYPERTENSION
     Dosage: 12.5  ONE/DAY ORAL
     Route: 048
     Dates: start: 20120401

REACTIONS (3)
  - RASH [None]
  - PRODUCT SUBSTITUTION ISSUE [None]
  - OEDEMA PERIPHERAL [None]
